FAERS Safety Report 4713974-6 (Version None)
Quarter: 2005Q3

REPORT INFORMATION
  Report Type: 
  Country: None (occurrence: None)
  Receive Date: 20050713
  Receipt Date: 20050627
  Transmission Date: 20060218
  Serious: Yes (Hospitalization, Other)
  Sender: FDA-Public Use
  Company Number: 2005BI009355

PATIENT
  Age: 61 Year
  Sex: Female

DRUGS (19)
  1. AVONEX [Suspect]
     Indication: MULTIPLE SCLEROSIS
     Dosage: 30 UG; IM
     Route: 030
     Dates: start: 19970201, end: 20031008
  2. AVONEX [Suspect]
     Indication: MULTIPLE SCLEROSIS
     Dosage: 30 UG; IM
     Route: 030
     Dates: start: 20040525
  3. BACLOFEN [Concomitant]
  4. IMPRAMINE HCL [Concomitant]
  5. ARTHROTEC [Concomitant]
  6. KLONOPIN [Concomitant]
  7. ULTRACET [Concomitant]
  8. LORTAB [Concomitant]
  9. NIASPAN [Concomitant]
  10. FOLIC ACID [Concomitant]
  11. NEURONTIN [Concomitant]
  12. MIDOWAR [Concomitant]
  13. TAILIA [Concomitant]
  14. SYMMETREL [Concomitant]
  15. PROVIGIL [Concomitant]
  16. VIVELLE [Concomitant]
  17. POTASSIUM CHLORIDE [Concomitant]
  18. VITAMIN B6 [Concomitant]
  19. VITAMIN E [Concomitant]

REACTIONS (8)
  - ANAEMIA [None]
  - ARTHRALGIA [None]
  - BURSITIS [None]
  - FALL [None]
  - JOINT DISLOCATION [None]
  - MENISCUS LESION [None]
  - OSTEOARTHRITIS [None]
  - TRAUMATIC ARTHRITIS [None]
